FAERS Safety Report 10063785 (Version 1)
Quarter: 2014Q2

REPORT INFORMATION
  Report Type: Spontaneous
  Country: US (occurrence: US)
  Receive Date: 20140408
  Receipt Date: 20140408
  Transmission Date: 20141212
  Serious: Yes (Other)
  Sender: FDA-Public Use
  Company Number: US-ROCHE-1374131

PATIENT
  Age: 51 Year
  Sex: Female
  Weight: 113 kg

DRUGS (1)
  1. XOLAIR [Suspect]
     Indication: ASTHMA
     Route: 058
     Dates: end: 20140304

REACTIONS (1)
  - Anaphylactic reaction [Recovered/Resolved]
